FAERS Safety Report 4640295-2 (Version None)
Quarter: 2005Q2

REPORT INFORMATION
  Report Type: 
  Country: None (occurrence: None)
  Receive Date: 20050420
  Receipt Date: 20040308
  Transmission Date: 20051028
  Serious: No
  Sender: FDA-Public Use
  Company Number: US-GLAXOSMITHKLINE-A0501612A

PATIENT
  Age: 64 Year
  Sex: Male
  Weight: 96.8 kg

DRUGS (3)
  1. ESKALITH [Suspect]
     Dosage: 450MG TWICE PER DAY
     Route: 048
  2. PAXIL [Concomitant]
  3. SYNTHROID [Concomitant]

REACTIONS (3)
  - BRADYCARDIA [None]
  - DIZZINESS [None]
  - DYSPNOEA [None]
